FAERS Safety Report 19845390 (Version 1)
Quarter: 2021Q3

REPORT INFORMATION
  Report Type: Spontaneous
  Country: US (occurrence: US)
  Receive Date: 20210916
  Receipt Date: 20210916
  Transmission Date: 20211014
  Serious: Yes (Other)
  Sender: FDA-Public Use
  Company Number: US-THE MENTHOLATUM COMPANY-2118466

PATIENT
  Age: 51 Year
  Sex: Male

DRUGS (1)
  1. EQUATE CAPSAICIN PAIN RELIEVING [Suspect]
     Active Substance: CAPSAICIN
     Indication: ANALGESIC THERAPY
     Route: 061
     Dates: start: 20210911, end: 20210911

REACTIONS (2)
  - Blister [Not Recovered/Not Resolved]
  - Skin disorder [Not Recovered/Not Resolved]

NARRATIVE: CASE EVENT DATE: 20210911
